FAERS Safety Report 20482488 (Version 1)
Quarter: 2022Q1

REPORT INFORMATION
  Report Type: Spontaneous
  Country: TR (occurrence: TR)
  Receive Date: 20220217
  Receipt Date: 20220217
  Transmission Date: 20220424
  Serious: Yes (Other)
  Sender: FDA-Public Use
  Company Number: TR-NOVARTISPH-NVSC2022TR033150

PATIENT
  Age: 83 Year
  Sex: Male

DRUGS (2)
  1. TAFINLAR [Suspect]
     Active Substance: DABRAFENIB MESYLATE
     Indication: Malignant melanoma
     Dosage: 2 DOSAGE FORM, BID
     Route: 065
  2. MEKINIST [Suspect]
     Active Substance: TRAMETINIB DIMETHYL SULFOXIDE
     Indication: Malignant melanoma
     Dosage: 2 DOSAGE FORM, BID
     Route: 065

REACTIONS (9)
  - Malignant melanoma [Unknown]
  - Malignant neoplasm progression [Unknown]
  - Metastases to central nervous system [Unknown]
  - Metastases to spinal cord [Unknown]
  - Metastases to muscle [Unknown]
  - Metastases to bone [Unknown]
  - Depersonalisation/derealisation disorder [Unknown]
  - Laziness [Unknown]
  - Product supply issue [Unknown]
